FAERS Safety Report 8097913-9 (Version None)
Quarter: 2012Q1

REPORT INFORMATION
  Report Type: 
  Country: None (occurrence: None)
  Receive Date: 20120128
  Receipt Date: 20110720
  Transmission Date: 20120608
  Serious: No
  Sender: FDA-Public Use
  Company Number: US-ABBOTT-11P-163-0840754-00

PATIENT
  Age: 60 Year
  Sex: Male

DRUGS (5)
  1. AVODART [Concomitant]
     Indication: PROSTATOMEGALY
     Route: 048
  2. LISINOPRIL AND HYDROCHLOROTHIAZIDE [Concomitant]
     Indication: BLOOD PRESSURE INCREASED
     Dosage: 20/12.5 MG
  3. AMBIEN [Concomitant]
     Indication: INSOMNIA
     Route: 048
  4. HUMIRA [Suspect]
     Indication: PSORIATIC ARTHROPATHY
     Dates: start: 20080501
  5. SORIATANE [Concomitant]
     Indication: PSORIASIS

REACTIONS (2)
  - TREMOR [None]
  - SKIN ATROPHY [None]
